FAERS Safety Report 4357365-9 (Version None)
Quarter: 2004Q2

REPORT INFORMATION
  Report Type: 
  Country: None (occurrence: None)
  Receive Date: 20040513
  Receipt Date: 20040415
  Transmission Date: 20050107
  Serious: Yes (Life-Threatening)
  Sender: FDA-Public Use
  Company Number: 200414225GDDC

PATIENT
  Age: 40 Year
  Sex: Female

DRUGS (4)
  1. CEFOTAXIME [Suspect]
     Indication: PERIORBITAL CELLULITIS
     Route: 042
     Dates: start: 20040325, end: 20040415
  2. PHENYTOIN [Suspect]
     Indication: GRAND MAL CONVULSION
     Route: 048
     Dates: start: 20040411, end: 20040418
  3. METRONIDAZOLE [Concomitant]
     Indication: PERIORBITAL CELLULITIS
     Route: 042
     Dates: start: 20040325, end: 20040415
  4. ASPIRIN [Concomitant]
     Route: 048

REACTIONS (1)
  - PANCYTOPENIA [None]
